FAERS Safety Report 10216160 (Version 4)
Quarter: 2014Q3

REPORT INFORMATION
  Report Type: Spontaneous
  Country: US (occurrence: US)
  Receive Date: 20140604
  Receipt Date: 20140703
  Transmission Date: 20150326
  Serious: Yes (Hospitalization, Other)
  Sender: FDA-Public Use
  Company Number: US-BAXTER-2014BAX028038

PATIENT
  Sex: Female

DRUGS (1)
  1. DIANEAL LOW CALCIUM PERITONEAL DIALYSIS SOLUTION WITH DEXTROSE [Suspect]
     Active Substance: CALCIUM CHLORIDE\DEXTROSE\MAGNESIUM CHLORIDE\SODIUM CHLORIDE\SODIUM LACTATE
     Indication: PERITONEAL DIALYSIS
     Route: 033
     Dates: start: 20120522, end: 20140603

REACTIONS (5)
  - Pneumonia [Unknown]
  - Peritonitis bacterial [Recovering/Resolving]
  - Intestinal obstruction [Recovering/Resolving]
  - Staphylococcal infection [Unknown]
  - Hernia [Recovering/Resolving]

NARRATIVE: CASE EVENT DATE: 20140522
